FAERS Safety Report 19931476 (Version 3)
Quarter: 2021Q4

REPORT INFORMATION
  Report Type: Spontaneous
  Country: GB (occurrence: GB)
  Receive Date: 20211007
  Receipt Date: 20211202
  Transmission Date: 20220303
  Serious: Yes (Other)
  Sender: FDA-Public Use
  Company Number: GB-ALXN-A202110945

PATIENT
  Age: 48 Year
  Sex: Male

DRUGS (1)
  1. SOLIRIS [Suspect]
     Active Substance: ECULIZUMAB
     Indication: Paroxysmal nocturnal haemoglobinuria
     Dosage: 1500 MG, Q2W
     Route: 065
     Dates: start: 201209

REACTIONS (2)
  - Extravascular haemolysis [Unknown]
  - Off label use [Unknown]

NARRATIVE: CASE EVENT DATE: 20210901
